FAERS Safety Report 11786346 (Version 4)
Quarter: 2018Q4

REPORT INFORMATION
  Report Type: Spontaneous
  Country: US (occurrence: US)
  Receive Date: 20151130
  Receipt Date: 20181119
  Transmission Date: 20190204
  Serious: No
  Sender: FDA-Public Use
  Company Number: US-009507513-1511USA002501

PATIENT
  Age: 54 Year
  Sex: Female

DRUGS (4)
  1. IDARUBICIN HYDROCHLORIDE. [Suspect]
     Active Substance: IDARUBICIN HYDROCHLORIDE
  2. CYTARABINE. [Suspect]
     Active Substance: CYTARABINE
  3. FOSCARNET SODIUM. [Suspect]
     Active Substance: FOSCARNET SODIUM
  4. ZOLINZA [Suspect]
     Active Substance: VORINOSTAT
     Dosage: UNK

REACTIONS (1)
  - Human herpesvirus 6 infection [Unknown]
